FAERS Safety Report 5891737-6 (Version None)
Quarter: 2008Q3

REPORT INFORMATION
  Report Type: 
  Country: None (occurrence: None)
  Receive Date: 20080922
  Receipt Date: 20080910
  Transmission Date: 20090109
  Serious: Yes (Other)
  Sender: FDA-Public Use
  Company Number: US-PFIZER INC-2008059672

PATIENT
  Sex: Female

DRUGS (13)
  1. CHANTIX [Suspect]
     Indication: SMOKING CESSATION THERAPY
     Route: 048
     Dates: start: 20080521, end: 20080525
  2. XANAX [Interacting]
     Indication: ANXIETY
  3. XANAX [Interacting]
     Indication: PANIC ATTACK
  4. XANAX [Interacting]
     Indication: BIPOLAR DISORDER
  5. XANAX [Interacting]
     Indication: DEPRESSION
  6. ALL OTHER THERAPEUTIC PRODUCTS [Interacting]
     Indication: ANXIETY
  7. ALL OTHER THERAPEUTIC PRODUCTS [Interacting]
     Indication: PANIC ATTACK
  8. ALL OTHER THERAPEUTIC PRODUCTS [Interacting]
     Indication: BIPOLAR DISORDER
  9. ALL OTHER THERAPEUTIC PRODUCTS [Interacting]
     Indication: DEPRESSION
  10. ALL OTHER THERAPEUTIC PRODUCTS [Interacting]
  11. ALL OTHER THERAPEUTIC PRODUCTS [Interacting]
  12. ALL OTHER THERAPEUTIC PRODUCTS [Interacting]
  13. ALL OTHER THERAPEUTIC PRODUCTS [Interacting]

REACTIONS (2)
  - DRUG INTERACTION [None]
  - PANIC ATTACK [None]
